FAERS Safety Report 22628855 (Version 5)
Quarter: 2023Q4

REPORT INFORMATION
  Report Type: Spontaneous
  Country: GB (occurrence: GB)
  Receive Date: 20230622
  Receipt Date: 20231023
  Transmission Date: 20240110
  Serious: Yes (Other)
  Sender: FDA-Public Use
  Company Number: GB-TEVA-2023-GB-2898586

PATIENT
  Age: 3 Year
  Sex: Female

DRUGS (3)
  1. OCTREOTIDE [Suspect]
     Active Substance: OCTREOTIDE
     Indication: Chylothorax
     Route: 065
  2. LOPERAMIDE [Suspect]
     Active Substance: LOPERAMIDE
     Indication: Gastrointestinal stoma complication
     Dosage: MAXIMUM DOSE
     Route: 065
  3. TRAMETINIB [Suspect]
     Active Substance: TRAMETINIB
     Indication: Chylothorax
     Dosage: .032 MG/KG DAILY; 0.032 MG/KG/DAY FOR 12 WEEKS
     Route: 065

REACTIONS (8)
  - Drug eruption [Recovered/Resolved]
  - Gastrointestinal stoma complication [Unknown]
  - Pneumonitis [Unknown]
  - Hypertension [Unknown]
  - Nausea [Unknown]
  - Cardiac disorder [Unknown]
  - Drug ineffective [Unknown]
  - Off label use [Unknown]
